FAERS Safety Report 8801714 (Version 2)
Quarter: 2015Q2

REPORT INFORMATION
  Report Type: Report from Study
  Country: US (occurrence: US)
  Receive Date: 20120921
  Receipt Date: 20150617
  Transmission Date: 20150821
  Serious: Yes (Death)
  Sender: FDA-Public Use
  Company Number: US-ROCHE-1124653

PATIENT
  Sex: Male
  Weight: 83 kg

DRUGS (13)
  1. AVASTIN [Suspect]
     Active Substance: BEVACIZUMAB
     Route: 042
  2. AVASTIN [Suspect]
     Active Substance: BEVACIZUMAB
     Route: 042
  3. GEMZAR [Concomitant]
     Active Substance: GEMCITABINE HYDROCHLORIDE
     Route: 065
  4. NEXAVAR [Concomitant]
     Active Substance: SORAFENIB
     Route: 065
  5. CARBOPLATIN. [Concomitant]
     Active Substance: CARBOPLATIN
     Route: 065
  6. ARANESP [Concomitant]
     Active Substance: DARBEPOETIN ALFA
     Route: 058
  7. BAG BALM [Concomitant]
  8. AVASTIN [Suspect]
     Active Substance: BEVACIZUMAB
     Indication: RENAL CANCER
     Route: 042
     Dates: start: 200511
  9. ARANESP [Concomitant]
     Active Substance: DARBEPOETIN ALFA
     Route: 058
  10. DECADRON [Concomitant]
     Active Substance: DEXAMETHASONE
     Route: 065
  11. ALOXI [Concomitant]
     Active Substance: PALONOSETRON HYDROCHLORIDE
     Route: 065
  12. ARANESP [Concomitant]
     Active Substance: DARBEPOETIN ALFA
     Route: 058
  13. SOLU-MEDROL [Concomitant]
     Active Substance: METHYLPREDNISOLONE SODIUM SUCCINATE
     Route: 065

REACTIONS (6)
  - Eating disorder [Unknown]
  - Off label use [Unknown]
  - Decreased appetite [Unknown]
  - Death [Fatal]
  - Fatigue [Unknown]
  - Seborrhoeic keratosis [Unknown]
